FAERS Safety Report 6268241-9 (Version None)
Quarter: 2009Q3

REPORT INFORMATION
  Report Type: 
  Country: None (occurrence: None)
  Receive Date: 20090715
  Receipt Date: 20070531
  Transmission Date: 20100115
  Serious: Yes (Hospitalization, Other)
  Sender: FDA-Public Use
  Company Number: US-ASTRAZENECA-2006UW24642

PATIENT
  Age: 15576 Day
  Sex: Female
  Weight: 59.4 kg

DRUGS (12)
  1. SEROQUEL [Suspect]
     Indication: DEPRESSION
     Dosage: 25 MG 2 AT NIGHT
     Route: 048
     Dates: start: 20010111, end: 20040629
  2. ABILIFY [Concomitant]
     Dosage: 5 MG 1-3 EVERY MORNING
     Route: 048
     Dates: start: 20050104
  3. ABILIFY [Concomitant]
     Dates: start: 20050401, end: 20060101
  4. ZYPREXA [Concomitant]
     Dates: end: 20040101
  5. ZOLOFT [Concomitant]
     Route: 048
     Dates: start: 20000918, end: 20051003
  6. XANAX [Concomitant]
     Route: 048
     Dates: start: 20000918
  7. AMITRIPTYLINE [Concomitant]
     Indication: SLEEP DISORDER
     Dosage: 25 MG 1-3 AT NIGHT
     Route: 048
     Dates: start: 20000918
  8. SONATA [Concomitant]
     Route: 048
     Dates: start: 20010521
  9. CELEXA [Concomitant]
     Dosage: 20 MG ONE AND HALF DAILY
     Route: 048
     Dates: start: 20010702
  10. AMBIEN [Concomitant]
     Dosage: 10 MG 1 OR 2 AT NIGHT
     Route: 048
     Dates: start: 20011228
  11. LEXAPRO [Concomitant]
     Route: 048
     Dates: start: 20030127
  12. REMERON [Concomitant]
     Indication: SLEEP DISORDER
     Dosage: 15 MG 1-2 AT NIGHT
     Route: 048
     Dates: start: 20040323

REACTIONS (5)
  - DIABETES MELLITUS [None]
  - DIABETIC NEUROPATHY [None]
  - HYPERGLYCAEMIA [None]
  - PANCREATITIS [None]
  - TYPE 2 DIABETES MELLITUS [None]
